FAERS Safety Report 7053175-2 (Version None)
Quarter: 2010Q4

REPORT INFORMATION
  Report Type: 
  Country: None (occurrence: None)
  Receive Date: 20101020
  Receipt Date: 20101011
  Transmission Date: 20110411
  Serious: Yes (Hospitalization)
  Sender: FDA-Public Use
  Company Number: KR-ASTRAZENECA-2010SE47834

PATIENT
  Age: 60 Year
  Sex: Male

DRUGS (9)
  1. CRESTOR [Suspect]
     Indication: HYPERLIPIDAEMIA
     Route: 048
     Dates: start: 20050716
  2. CIRRUS CAP [Suspect]
     Indication: URINARY TRACT INFECTION
     Route: 065
     Dates: start: 20050722, end: 20050801
  3. RHINATHIOL [Suspect]
     Indication: URINARY TRACT INFECTION
     Route: 065
     Dates: start: 20050722, end: 20050801
  4. MOTILIUM M [Suspect]
     Indication: URINARY TRACT INFECTION
     Route: 065
     Dates: start: 20050722, end: 20050801
  5. TRICEF [Concomitant]
     Indication: URINARY TRACT INFECTION
     Dates: start: 20050722
  6. TYLENOL ER [Concomitant]
     Indication: URINARY TRACT INFECTION
     Dates: start: 20050722
  7. CICIBON [Concomitant]
     Indication: RENAL FAILURE CHRONIC
     Dates: start: 20050525
  8. DILATREND [Concomitant]
     Indication: HYPERTENSION
     Dates: start: 20050525
  9. RECORMON [Concomitant]
     Indication: ANAEMIA
     Dosage: 3000U/0.3ML PREFILLED SYR.
     Dates: start: 20050525

REACTIONS (1)
  - TREMOR [None]
